FAERS Safety Report 8317208-5 (Version None)
Quarter: 2012Q2

REPORT INFORMATION
  Report Type: 
  Country: None (occurrence: None)
  Receive Date: 20120425
  Receipt Date: 20120411
  Transmission Date: 20120825
  Serious: Yes (Hospitalization)
  Sender: FDA-Public Use
  Company Number: NGX_01049_2012

PATIENT
  Sex: Female

DRUGS (2)
  1. QUTENZA [Suspect]
     Indication: NEURALGIA
     Dosage: (DF [PATCH, APPLIED TO THE ARM] TOPICAL)
     Route: 061
     Dates: start: 20120410, end: 20120410
  2. ANALGESICS [Concomitant]

REACTIONS (4)
  - SKIN BURNING SENSATION [None]
  - COMPLEX REGIONAL PAIN SYNDROME [None]
  - APPLICATION SITE ERYTHEMA [None]
  - APPLICATION SITE SWELLING [None]
